FAERS Safety Report 7408411-7 (Version None)
Quarter: 2011Q2

REPORT INFORMATION
  Report Type: 
  Country: None (occurrence: None)
  Receive Date: 20110412
  Receipt Date: 20110407
  Transmission Date: 20111010
  Serious: Yes (Other)
  Sender: FDA-Public Use
  Company Number: ES-AMGEN-ESPSP2011018620

PATIENT
  Age: 51 Year
  Sex: Female
  Weight: 68 kg

DRUGS (2)
  1. NEULASTA [Suspect]
     Indication: CHEMOTHERAPY
     Dosage: 6 MG, QCYCLE
     Route: 058
     Dates: start: 20110215, end: 20110215
  2. ANTINEOPLASTIC AGENTS [Concomitant]

REACTIONS (2)
  - DYSPNOEA EXERTIONAL [None]
  - TACHYCARDIA [None]
